FAERS Safety Report 15308883 (Version 4)
Quarter: 2019Q1

REPORT INFORMATION
  Report Type: Report from Study
  Country: None (occurrence: US)
  Receive Date: 20180823
  Receipt Date: 20190115
  Transmission Date: 20190417
  Serious: Yes (Hospitalization, Other)
  Sender: FDA-Public Use
  Company Number: US-ABBVIE-18K-163-2454091-00

PATIENT
  Age: 64 Year
  Sex: Female

DRUGS (3)
  1. HUMIRA [Suspect]
     Active Substance: ADALIMUMAB
     Indication: COLITIS ULCERATIVE
     Route: 058
     Dates: end: 2018
  2. HUMIRA [Suspect]
     Active Substance: ADALIMUMAB
     Route: 058
     Dates: start: 2018, end: 2018
  3. HUMIRA [Suspect]
     Active Substance: ADALIMUMAB
     Indication: CROHN^S DISEASE
     Route: 058

REACTIONS (9)
  - Urinary tract infection [Recovered/Resolved]
  - Pneumonia [Recovered/Resolved]
  - Sepsis [Recovered/Resolved]
  - Gastrointestinal haemorrhage [Not Recovered/Not Resolved]
  - Sepsis [Recovered/Resolved]
  - Haemoglobin decreased [Not Recovered/Not Resolved]
  - Myasthenia gravis crisis [Not Recovered/Not Resolved]
  - Frequent bowel movements [Recovering/Resolving]
  - Ulcer haemorrhage [Not Recovered/Not Resolved]

NARRATIVE: CASE EVENT DATE: 2017
